FAERS Safety Report 9410057 (Version 1)
Quarter: 2013Q3

REPORT INFORMATION
  Report Type: Report from Study
  Country: BR (occurrence: BR)
  Receive Date: 20130719
  Receipt Date: 20130719
  Transmission Date: 20140515
  Serious: Yes (Hospitalization, Other)
  Sender: FDA-Public Use
  Company Number: BR-ABBOTT-13P-020-1119040-00

PATIENT
  Age: 68 Year
  Sex: Female
  Weight: 75 kg

DRUGS (5)
  1. HUMIRA [Suspect]
     Indication: RHEUMATOID ARTHRITIS
     Route: 058
     Dates: start: 20120101, end: 201304
  2. HUMIRA [Suspect]
     Route: 058
  3. PRESS PLUS [Concomitant]
     Indication: HYPERTENSION
     Route: 048
     Dates: start: 201211
  4. OMEPRAZOLE [Concomitant]
     Indication: GASTRIC DISORDER
     Route: 048
     Dates: start: 201206
  5. TOLREST [Concomitant]
     Indication: PHOBIA
     Route: 048
     Dates: start: 201301

REACTIONS (3)
  - Osteoarthritis [Recovering/Resolving]
  - Drug ineffective [Not Recovered/Not Resolved]
  - Arthralgia [Unknown]
